FAERS Safety Report 9788707 (Version 5)
Quarter: 2014Q2

REPORT INFORMATION
  Report Type: Spontaneous
  Country: DK (occurrence: JP)
  Receive Date: 20131230
  Receipt Date: 20140508
  Transmission Date: 20141212
  Serious: Yes (Life-Threatening)
  Sender: FDA-Public Use
  Company Number: JP-FRI-1000052527

PATIENT
  Age: 38 Year
  Sex: Female
  Weight: 55 kg

DRUGS (6)
  1. LEXAPRO [Suspect]
     Indication: DEPRESSION
     Dosage: 5 MG
     Route: 048
     Dates: start: 20131017, end: 20131105
  2. MEILAX [Concomitant]
     Indication: DEPRESSION
     Dosage: 4 MG
     Route: 048
     Dates: start: 20081006, end: 20131105
  3. DEPROMEL [Concomitant]
     Indication: DEPRESSION
     Dosage: 150 MG
     Route: 048
     Dates: start: 20090119, end: 20131105
  4. SEROQUEL [Concomitant]
     Indication: INSOMNIA
     Dosage: 50 MG
     Route: 048
     Dates: start: 20090525, end: 20131105
  5. GOODMIN [Concomitant]
     Indication: INSOMNIA
     Dosage: 0.5 MG
     Route: 048
     Dates: start: 20090817, end: 20131105
  6. LEXOTAN [Concomitant]
     Indication: ANXIETY
     Route: 048
     Dates: start: 20130730, end: 20131105

REACTIONS (1)
  - Hepatic failure [Recovered/Resolved]
